FAERS Safety Report 7795399-2 (Version None)
Quarter: 2011Q4

REPORT INFORMATION
  Report Type: 
  Country: None (occurrence: None)
  Receive Date: 20111004
  Receipt Date: 20110930
  Transmission Date: 20120403
  Serious: Yes (Death)
  Sender: FDA-Public Use
  Company Number: JP-ABBOTT-11P-087-0850325-00

PATIENT
  Sex: Female
  Weight: 27.5 kg

DRUGS (13)
  1. DISOPYRAMIDE PHOSPHATE [Suspect]
     Indication: SUPRAVENTRICULAR TACHYCARDIA
     Route: 048
     Dates: end: 20061010
  2. THEOPHYLLINE [Concomitant]
     Indication: BRONCHIOLITIS
     Route: 048
     Dates: start: 20060626, end: 20061016
  3. ZOLPIDEM TARTRATE [Concomitant]
     Indication: INSOMNIA
     Route: 048
     Dates: start: 20060710, end: 20061015
  4. FUROSEMIDE [Concomitant]
     Indication: CARDIAC FAILURE CHRONIC
     Route: 048
     Dates: end: 20061016
  5. RABEPRAZOLE SODIUM [Concomitant]
     Indication: GASTROOESOPHAGEAL REFLUX DISEASE
     Route: 048
     Dates: start: 20060819, end: 20061016
  6. CLARITHROMYCIN [Suspect]
     Indication: BRONCHIOLITIS
     Route: 048
     Dates: start: 20060630, end: 20060918
  7. URSODIOL [Concomitant]
     Indication: CHOLELITHIASIS
     Route: 048
     Dates: end: 20061016
  8. ISOSORBIDE DINITRATE [Concomitant]
     Indication: CARDIAC FAILURE CHRONIC
     Route: 062
     Dates: end: 20061016
  9. RADIOTHERAPY [Concomitant]
     Indication: UTERINE CANCER
     Dates: start: 20060621, end: 20060817
  10. CLARITHROMYCIN [Suspect]
     Dates: start: 20060919, end: 20061016
  11. ERYTHROMYCIN STEARATE [Suspect]
     Indication: BRONCHIOLITIS
     Route: 048
     Dates: start: 19920101, end: 20060629
  12. ACARDI [Suspect]
     Indication: CARDIAC FAILURE CHRONIC
     Route: 048
     Dates: end: 20061016
  13. TIOTROPIUM BROMIDE HYDRATE [Concomitant]
     Indication: OBSTRUCTIVE AIRWAYS DISORDER
     Route: 055
     Dates: start: 20060630, end: 20061016

REACTIONS (2)
  - VENTRICULAR TACHYCARDIA [None]
  - ARRHYTHMIA [None]
